FAERS Safety Report 22309724 (Version 4)
Quarter: 2023Q2

REPORT INFORMATION
  Report Type: Spontaneous
  Country: PL (occurrence: PL)
  Receive Date: 20230511
  Receipt Date: 20230524
  Transmission Date: 20230722
  Serious: Yes (Other)
  Sender: FDA-Public Use
  Company Number: PL-ROCHE-3342252

PATIENT
  Age: 58 Year
  Sex: Female

DRUGS (21)
  1. DOXORUBICIN HYDROCHLORIDE [Suspect]
     Active Substance: DOXORUBICIN HYDROCHLORIDE
     Indication: B-cell small lymphocytic lymphoma
     Dosage: THREE COURSES
     Dates: start: 200502
  2. DOXORUBICIN HYDROCHLORIDE [Suspect]
     Active Substance: DOXORUBICIN HYDROCHLORIDE
     Indication: Chronic lymphocytic leukaemia
     Dosage: EIGHT COURSES
     Route: 065
     Dates: start: 2009
  3. DOXORUBICIN HYDROCHLORIDE [Suspect]
     Active Substance: DOXORUBICIN HYDROCHLORIDE
     Dosage: 400 MG/M2
     Route: 065
  4. RITUXIMAB [Suspect]
     Active Substance: RITUXIMAB
     Indication: B-cell small lymphocytic lymphoma
     Dosage: THREE COURSES
     Dates: start: 200502
  5. RITUXIMAB [Suspect]
     Active Substance: RITUXIMAB
     Indication: Chronic lymphocytic leukaemia
     Dosage: EIGHT COURSES; USED AS MAINTENANCE
     Route: 065
     Dates: start: 2009, end: 201203
  6. RITUXIMAB [Suspect]
     Active Substance: RITUXIMAB
     Dosage: FIVE COURSES
     Route: 065
     Dates: start: 202110
  7. RITUXIMAB [Suspect]
     Active Substance: RITUXIMAB
     Dosage: 500 MG/M2, MONTHLY
     Route: 065
     Dates: start: 202204
  8. PREDNISONE [Suspect]
     Active Substance: PREDNISONE
     Indication: Chronic lymphocytic leukaemia
     Dosage: THREE COURSES
     Dates: start: 200502
  9. PREDNISONE [Suspect]
     Active Substance: PREDNISONE
     Indication: B-cell small lymphocytic lymphoma
     Dosage: EIGHT COURSES
     Route: 065
     Dates: start: 2009
  10. CYCLOPHOSPHAMIDE [Suspect]
     Active Substance: CYCLOPHOSPHAMIDE
     Indication: B-cell small lymphocytic lymphoma
     Dosage: THREE COURSES
     Dates: start: 200502
  11. CYCLOPHOSPHAMIDE [Suspect]
     Active Substance: CYCLOPHOSPHAMIDE
     Indication: Chronic lymphocytic leukaemia
     Dosage: EIGHT COURSES
     Route: 065
     Dates: start: 2009, end: 2009
  12. VINCRISTINE [Suspect]
     Active Substance: VINCRISTINE
     Indication: Lymphocytic lymphoma
     Dosage: THREE COURSES
     Dates: start: 200502
  13. VINCRISTINE [Suspect]
     Active Substance: VINCRISTINE
     Dosage: EIGHT COURSES
     Route: 065
     Dates: start: 2009, end: 2009
  14. FLUDARABINE [Concomitant]
     Active Substance: FLUDARABINE PHOSPHATE
     Indication: Chronic lymphocytic leukaemia
     Dosage: SIX COURSES
  15. FLUDARABINE [Concomitant]
     Active Substance: FLUDARABINE PHOSPHATE
     Indication: B-cell small lymphocytic lymphoma
  16. VENETOCLAX [Concomitant]
     Active Substance: VENETOCLAX
     Indication: Chronic lymphocytic leukaemia
     Dates: start: 202204
  17. VENETOCLAX [Concomitant]
     Active Substance: VENETOCLAX
     Indication: B-cell small lymphocytic lymphoma
     Dosage: DOSES RAMPING WEEKLY FROM 20 MG/DAY TO400 MG/DAY
     Route: 048
  18. VENETOCLAX [Concomitant]
     Active Substance: VENETOCLAX
     Dosage: NUMBER OF UNITS IN THE INTERVAL 1 DAY
  19. RIVAROXABAN [Concomitant]
     Active Substance: RIVAROXABAN
     Indication: Anticoagulant therapy
     Dosage: UNK
  20. RIVAROXABAN [Concomitant]
     Active Substance: RIVAROXABAN
     Indication: Prophylaxis
  21. BENDAMUSTINE [Concomitant]
     Active Substance: BENDAMUSTINE
     Indication: Immunochemotherapy
     Dosage: FIVE COURSES
     Dates: start: 202110

REACTIONS (2)
  - Pancytopenia [Recovered/Resolved]
  - Infection [Recovered/Resolved]

NARRATIVE: CASE EVENT DATE: 20090101
